FAERS Safety Report 9699787 (Version 1)
Quarter: 2013Q4

REPORT INFORMATION
  Report Type: Spontaneous
  Country: GB (occurrence: GB)
  Receive Date: 20131120
  Receipt Date: 20131120
  Transmission Date: 20140711
  Serious: Yes (Hospitalization, Other)
  Sender: FDA-Public Use
  Company Number: GB-TEVA-444350ISR

PATIENT
  Age: 82 Year
  Sex: Female

DRUGS (11)
  1. BISOPROLOL [Suspect]
     Indication: MYOCARDIAL INFARCTION
     Route: 048
     Dates: start: 201212, end: 201307
  2. TICAGRELOR [Suspect]
     Indication: MYOCARDIAL INFARCTION
     Dosage: 180 MILLIGRAM DAILY;
     Route: 048
     Dates: start: 20121229, end: 20130718
  3. TICAGRELOR [Suspect]
     Indication: ACUTE MYOCARDIAL INFARCTION
  4. BETA BLOCKER [Concomitant]
  5. RAMIPRIL [Concomitant]
     Indication: MYOCARDIAL INFARCTION
     Route: 048
     Dates: start: 201212
  6. OMEPRAZOLE [Concomitant]
     Indication: GASTROINTESTINAL DISORDER
     Route: 048
  7. PREDNISOLONE [Concomitant]
     Indication: FIBROMYALGIA
     Route: 048
  8. SIMVASTATIN [Concomitant]
     Indication: MYOCARDIAL INFARCTION
     Route: 048
     Dates: start: 201212
  9. OXYCODONE [Concomitant]
     Indication: PAIN
     Route: 048
  10. ASPIRIN [Concomitant]
     Dates: start: 201212
  11. LEVOTHYROXINE [Concomitant]

REACTIONS (4)
  - Atrial flutter [Recovered/Resolved]
  - Electrocardiogram abnormal [Recovered/Resolved]
  - Syncope [Recovered/Resolved]
  - Presyncope [Unknown]
